FAERS Safety Report 4698246-0 (Version None)
Quarter: 2005Q2

REPORT INFORMATION
  Report Type: 
  Country: None (occurrence: None)
  Receive Date: 20050621
  Receipt Date: 20050606
  Transmission Date: 20051028
  Serious: Yes (Hospitalization, Other)
  Sender: FDA-Public Use
  Company Number: USA050699795

PATIENT
  Sex: Female

DRUGS (1)
  1. CYMBALTA [Suspect]
     Indication: PAIN
     Dosage: 30 MG/2 DAY
     Dates: start: 20050427, end: 20050525

REACTIONS (7)
  - ABDOMINAL PAIN [None]
  - CONFUSIONAL STATE [None]
  - CONSTIPATION [None]
  - ERYTHEMA [None]
  - HYPERHIDROSIS [None]
  - LARGE INTESTINE PERFORATION [None]
  - RECTAL HAEMORRHAGE [None]
